FAERS Safety Report 18458607 (Version 1)
Quarter: 2020Q4

REPORT INFORMATION
  Report Type: Spontaneous
  Country: GB (occurrence: GB)
  Receive Date: 20201103
  Receipt Date: 20201103
  Transmission Date: 20210114
  Serious: Yes (Disabling)
  Sender: FDA-Public Use
  Company Number: GB-MYLANLABS-2020M1090861

PATIENT
  Age: 45 Year
  Sex: Female
  Weight: 74 kg

DRUGS (22)
  1. CASSIA ACUTIFOLIA [Concomitant]
     Dosage: 1 DOSAGE FORM
     Route: 048
     Dates: start: 20200916
  2. OLANZAPINE. [Suspect]
     Active Substance: OLANZAPINE
     Indication: PRODUCT USED FOR UNKNOWN INDICATION
     Dosage: 10 MILLIGRAM
     Route: 048
     Dates: start: 20200928
  3. ACICLOVIR [Concomitant]
     Active Substance: ACYCLOVIR
     Dosage: 1 DOSAGE FORM
     Route: 048
     Dates: start: 20200914, end: 20200921
  4. CYANOCOBALAMIN. [Concomitant]
     Active Substance: CYANOCOBALAMIN
     Dosage: 1 MILLIGRAM
     Dates: start: 20200925
  5. HYDROCORTISONE. [Concomitant]
     Active Substance: HYDROCORTISONE
     Dosage: 1 DOSAGE FORM, PRN, APPLICATION
     Dates: start: 20200922
  6. CHLORPHENAMINE [Concomitant]
     Active Substance: CHLORPHENIRAMINE MALEATE
     Dosage: 1 DOSAGE FORM
     Route: 048
     Dates: start: 20200907, end: 20200917
  7. CETIRIZINE [Concomitant]
     Active Substance: CETIRIZINE HYDROCHLORIDE
     Dosage: 1 DOSAGE FORM
     Route: 048
     Dates: start: 20200904, end: 20200907
  8. PROMETHAZINE TEOCLATE [Concomitant]
     Active Substance: PROMETHAZINE TEOCLATE
     Dosage: 1 DOSAGE FORM
     Route: 048
     Dates: start: 20200917, end: 20200917
  9. FOLIC ACID. [Concomitant]
     Active Substance: FOLIC ACID
     Dosage: 1 DOSAGE FORM
     Route: 048
     Dates: start: 20200905
  10. LACTULOSE. [Concomitant]
     Active Substance: LACTULOSE
     Dosage: 15 MILLILITER
     Dates: start: 20200916
  11. SALBUTAMOL [Concomitant]
     Active Substance: ALBUTEROL
     Dosage: UNK, 1-2 ACTUATION
     Dates: start: 20200907
  12. BETAMETHASONE VALERATE. [Concomitant]
     Active Substance: BETAMETHASONE VALERATE
     Dosage: APPLICATION
     Dates: start: 20200929
  13. MACROGOL [Concomitant]
     Active Substance: POLYETHYLENE GLYCOLS
     Dosage: 1 DOSAGE FORM, SACHET
     Dates: start: 20200907, end: 20200916
  14. PROMAZINE [Concomitant]
     Active Substance: PROMAZINE
     Dosage: UNK, 1-2
     Route: 048
     Dates: start: 20200905, end: 20200905
  15. PARACETAMOL [Concomitant]
     Active Substance: ACETAMINOPHEN
     Dosage: 2 DOSAGE FORM
     Route: 048
     Dates: start: 20200924
  16. FUSIDIC ACID [Concomitant]
     Active Substance: FUSIDIC ACID
     Dosage: 1 GTT DROPS, DROP
     Dates: start: 20200909
  17. PROMETHAZINE HYDROCHLORIDE. [Concomitant]
     Active Substance: PROMETHAZINE HYDROCHLORIDE
     Dosage: 1 DOSAGE FORM
     Route: 048
     Dates: start: 20200917
  18. ZOLPIDEM [Concomitant]
     Active Substance: ZOLPIDEM TARTRATE
     Dosage: UNK, 1-2
     Route: 048
     Dates: start: 20200909, end: 20200922
  19. LAXIDO [Concomitant]
     Active Substance: POLYETHYLENE GLYCOL 3350\POTASSIUM CHLORIDE\SODIUM BICARBONATE\SODIUM CHLORIDE
     Dosage: UNK, 1-2 SACHET
     Dates: start: 20200904, end: 20200907
  20. SERTRALINE [Concomitant]
     Active Substance: SERTRALINE HYDROCHLORIDE
     Dosage: 1 DOSAGE FORM
     Route: 048
     Dates: start: 20200923
  21. ZOPICLONE [Concomitant]
     Active Substance: ZOPICLONE
     Dosage: 1 DOSAGE FORM
     Route: 048
     Dates: start: 20200907, end: 20200909
  22. DERMOL                             /01330701/ [Concomitant]
     Dosage: UNK, 1-2 APPLICATION
     Dates: start: 20200909

REACTIONS (2)
  - Erythema [Unknown]
  - Rash maculo-papular [Unknown]

NARRATIVE: CASE EVENT DATE: 20200929
